FAERS Safety Report 5874474-3 (Version None)
Quarter: 2008Q3

REPORT INFORMATION
  Report Type: 
  Country: None (occurrence: None)
  Receive Date: 20080908
  Receipt Date: 20080901
  Transmission Date: 20090109
  Serious: Yes (Other)
  Sender: FDA-Public Use
  Company Number: DE-PFIZER INC-2008073585

PATIENT
  Age: 70 Year
  Sex: Female

DRUGS (3)
  1. SORTIS [Suspect]
     Route: 048
     Dates: start: 20080101
  2. PHLOGENZYM [Concomitant]
     Route: 048
  3. ANTICOAGULANTS [Concomitant]

REACTIONS (3)
  - MUSCLE SPASMS [None]
  - OEDEMA PERIPHERAL [None]
  - SENSATION OF HEAVINESS [None]
